FAERS Safety Report 17562782 (Version 1)
Quarter: 2020Q1

REPORT INFORMATION
  Report Type: Spontaneous
  Country: US (occurrence: US)
  Receive Date: 20200319
  Receipt Date: 20200319
  Transmission Date: 20200409
  Serious: Yes (Other)
  Sender: FDA-Public Use
  Company Number: US-BAYER-2020-045244

PATIENT
  Age: 24 Year
  Sex: Female

DRUGS (1)
  1. BETASERON [Suspect]
     Active Substance: INTERFERON BETA-1B
     Indication: MULTIPLE SCLEROSIS
     Dosage: 0.25 MG
     Dates: start: 2016

REACTIONS (4)
  - Gait disturbance [None]
  - Multiple sclerosis [None]
  - Gait disturbance [None]
  - Headache [None]

NARRATIVE: CASE EVENT DATE: 20190130
